FAERS Safety Report 4662019-5 (Version None)
Quarter: 2005Q2

REPORT INFORMATION
  Report Type: 
  Country: None (occurrence: None)
  Receive Date: 20050512
  Receipt Date: 20050429
  Transmission Date: 20051028
  Serious: Yes (Other)
  Sender: FDA-Public Use
  Company Number: 2005068173

PATIENT
  Age: 55 Year
  Sex: Female
  Weight: 87.9978 kg

DRUGS (3)
  1. DILANTIN KAPSEAL [Suspect]
     Indication: CONVULSION PROPHYLAXIS
     Dosage: 300 MG (1 IN 1 D) ORAL
     Route: 048
     Dates: start: 20041001
  2. PROPRANOLOL HYDROCHLORIDE [Concomitant]
  3. EZETIMIBE/SIMVASTATIN [Concomitant]

REACTIONS (5)
  - CONVULSION [None]
  - INCREASED UPPER AIRWAY SECRETION [None]
  - PRODUCTIVE COUGH [None]
  - VOMITING [None]
  - WEIGHT DECREASED [None]
